FAERS Safety Report 13510192 (Version 2)
Quarter: 2019Q4

REPORT INFORMATION
  Report Type: Spontaneous
  Country: US (occurrence: US)
  Receive Date: 20170503
  Receipt Date: 20191018
  Transmission Date: 20200122
  Serious: Yes (Other)
  Sender: FDA-Public Use
  Company Number: US-PFIZER INC-2017194667

PATIENT
  Age: 61 Year
  Sex: Male

DRUGS (5)
  1. FLOMAX [Concomitant]
     Active Substance: TAMSULOSIN HYDROCHLORIDE
     Indication: BLOOD PRESSURE ABNORMAL
     Dosage: 0.4 MG (1 DF), DAILY
     Dates: start: 2015
  2. PROSCAR [Concomitant]
     Active Substance: FINASTERIDE
     Indication: BLOOD PRESSURE ABNORMAL
     Dosage: 0.4 MG (1 DF), DAILY
     Dates: start: 2004, end: 2015
  3. PRAZOSIN. [Concomitant]
     Active Substance: PRAZOSIN
     Indication: BLOOD PRESSURE ABNORMAL
     Dosage: 1 MG (1 DF), 1X/DAY (EVERY BEDTIME)
     Route: 048
     Dates: start: 20050624, end: 20130624
  4. VIAGRA [Suspect]
     Active Substance: SILDENAFIL CITRATE
     Indication: ERECTILE DYSFUNCTION
     Dosage: 100 MG (HALF TABLET), 2-3 TIMES A WEEK, 30 TO 60 MINUTES PRIOR TO INTERCOURSE
     Route: 048
     Dates: start: 20070503, end: 20130411
  5. FLOMAX [Concomitant]
     Active Substance: TAMSULOSIN HYDROCHLORIDE
     Indication: URINE FLOW DECREASED

REACTIONS (3)
  - Malignant melanoma [Unknown]
  - Malignant melanoma in situ [Unknown]
  - Depression [Unknown]

NARRATIVE: CASE EVENT DATE: 20090805
